FAERS Safety Report 24869032 (Version 2)
Quarter: 2025Q1

REPORT INFORMATION
  Report Type: Report from Study
  Country: ZA (occurrence: ZA)
  Receive Date: 20250121
  Receipt Date: 20250204
  Transmission Date: 20250409
  Serious: Yes (Congenital Anomaly)
  Sender: MYLAN
  Company Number: ZA-MYLANLABS-2025M1005307

PATIENT
  Sex: Female
  Weight: 4.005 kg

DRUGS (9)
  1. DOLUTEGRAVIR [Suspect]
     Active Substance: DOLUTEGRAVIR
     Indication: HIV infection
     Dosage: 50 MILLIGRAM, QD
     Route: 064
     Dates: start: 20240418
  2. DOLUTEGRAVIR\LAMIVUDINE\TENOFOVIR DISOPROXIL FUMARATE [Suspect]
     Active Substance: DOLUTEGRAVIR\LAMIVUDINE\TENOFOVIR DISOPROXIL FUMARATE
     Indication: HIV infection
     Dosage: 650 MILLIGRAM, QD
     Route: 064
     Dates: start: 2019
  3. FOSFOMYCIN [Concomitant]
     Active Substance: FOSFOMYCIN
     Route: 064
  4. CEFAZOLIN [Concomitant]
     Active Substance: CEFAZOLIN
     Route: 064
  5. FENTANYL [Concomitant]
     Active Substance: FENTANYL
     Route: 064
  6. MORPHINE [Concomitant]
     Active Substance: MORPHINE
     Route: 064
  7. FOLATE SODIUM [Concomitant]
     Active Substance: FOLATE SODIUM
     Route: 064
  8. FERROUS SULFATE [Concomitant]
     Active Substance: FERROUS SULFATE
     Route: 064
  9. PYRIDOXINE [Concomitant]
     Active Substance: PYRIDOXINE
     Route: 064

REACTIONS (2)
  - Congenital umbilical hernia [Unknown]
  - Foetal exposure during pregnancy [Recovered/Resolved]
